FAERS Safety Report 8510053-7 (Version None)
Quarter: 2012Q2

REPORT INFORMATION
  Report Type: 
  Country: None (occurrence: None)
  Receive Date: 20120405
  Receipt Date: 20080912
  Transmission Date: 20120825
  Serious: Yes (Disabling, Other)
  Sender: FDA-Public Use
  Company Number: PHEH2008US07942

PATIENT
  Age: 87 Year
  Sex: Female
  Weight: 59.9 kg

DRUGS (13)
  1. LUTEIN (XANTOFYL) [Concomitant]
  2. MULTIVITAMINS, OTHER COMBINATIONS (NO INGREDIENTS/SUBSTANCES) [Concomitant]
  3. MAGNESIUM (MAGNESIUM) [Concomitant]
  4. CONQUER HA [Concomitant]
  5. ATENOLOL [Concomitant]
  6. SIMVASTATIN [Concomitant]
  7. BILBERRY (VACCINIUM MYRTILLUS) [Concomitant]
  8. RECLAST [Suspect]
     Indication: OSTEOPOROSIS
     Dosage: 5 MG, INFUSION
     Dates: start: 20080904, end: 20080904
  9. LEVOTHYROXINE SODIUM [Concomitant]
  10. CALCIUM CARBONATE [Concomitant]
  11. COUMADIN [Concomitant]
  12. LOVAZA [Concomitant]
  13. DETROL [Concomitant]

REACTIONS (8)
  - ARTHRALGIA [None]
  - MUSCULOSKELETAL DISORDER [None]
  - GAIT DISTURBANCE [None]
  - BACK PAIN [None]
  - ARTHRITIS [None]
  - BLOOD CALCIUM DECREASED [None]
  - OEDEMA PERIPHERAL [None]
  - FATIGUE [None]
